FAERS Safety Report 6895278-9 (Version None)
Quarter: 2010Q3

REPORT INFORMATION
  Report Type: 
  Country: None (occurrence: None)
  Receive Date: 20100802
  Receipt Date: 20100729
  Transmission Date: 20110219
  Serious: Yes (Life-Threatening, Hospitalization)
  Sender: FDA-Public Use
  Company Number: CA-MERCK-1005USA02278

PATIENT
  Age: 55 Year
  Sex: Male
  Weight: 86 kg

DRUGS (4)
  1. FOSAMAX [Suspect]
     Indication: OSTEOPOROSIS
     Route: 048
     Dates: start: 20090918, end: 20090925
  2. SERTRALINE HYDROCHLORIDE [Concomitant]
     Indication: DEPRESSION
     Route: 065
  3. VITAMIN D (UNSPECIFIED) [Concomitant]
     Indication: OSTEOPOROSIS
     Route: 065
     Dates: end: 20090918
  4. CALCIUM CARBONATE [Concomitant]
     Indication: OSTEOPOROSIS
     Route: 065
     Dates: end: 20090918

REACTIONS (3)
  - LOSS OF CONSCIOUSNESS [None]
  - SHOCK [None]
  - UPPER GASTROINTESTINAL HAEMORRHAGE [None]
